FAERS Safety Report 5107767-8 (Version None)
Quarter: 2006Q3

REPORT INFORMATION
  Report Type: 
  Country: None (occurrence: None)
  Receive Date: 20060914
  Receipt Date: 20060831
  Transmission Date: 20061208
  Serious: Yes (Other)
  Sender: FDA-Public Use
  Company Number: PHHO2006JP14597

PATIENT
  Age: 67 Year
  Sex: Male
  Weight: 66.9963 kg

DRUGS (7)
  1. VISUDYNE [Suspect]
     Indication: MACULAR DEGENERATION
     Dosage: 6 MG/M^2 ONCE IV
     Route: 042
     Dates: start: 20040520, end: 20040520
  2. MYONAL [Concomitant]
  3. RETICOLAN [Concomitant]
  4. GLYCAMIN [Concomitant]
  5. KETOPROFEN [Concomitant]
  6. MOBILAT [Concomitant]
  7. OMEPRAZOLE [Concomitant]

REACTIONS (2)
  - MACULOPATHY [None]
  - VISUAL ACUITY REDUCED [None]
